FAERS Safety Report 11471499 (Version 2)
Quarter: 2015Q3

REPORT INFORMATION
  Report Type: Spontaneous
  Country: US (occurrence: US)
  Receive Date: 20150903
  Receipt Date: 20150903
  Transmission Date: 20151125
  Serious: No
  Sender: FDA-Public Use
  Company Number: US-ELI_LILLY_AND_COMPANY-US201203000319

PATIENT
  Sex: Female

DRUGS (1)
  1. CYMBALTA [Suspect]
     Active Substance: DULOXETINE HYDROCHLORIDE
     Dosage: 30 MG, UNK
     Dates: start: 20120223, end: 20120225

REACTIONS (2)
  - Hypersensitivity [Unknown]
  - Eye swelling [Unknown]

NARRATIVE: CASE EVENT DATE: 20120225
